FAERS Safety Report 18359979 (Version 1)
Quarter: 2020Q4

REPORT INFORMATION
  Report Type: Spontaneous
  Country: HU (occurrence: HU)
  Receive Date: 20201008
  Receipt Date: 20201008
  Transmission Date: 20210114
  Serious: Yes (Other)
  Sender: FDA-Public Use
  Company Number: HU-PFIZER INC-2020384824

PATIENT
  Sex: Male

DRUGS (3)
  1. SILDENAFIL CITRATE. [Suspect]
     Active Substance: SILDENAFIL CITRATE
     Dosage: UNK
     Route: 065
     Dates: start: 2015
  2. TADALAFIL. [Suspect]
     Active Substance: TADALAFIL
     Dosage: UNK
     Route: 065
     Dates: start: 2020
  3. SPEDRA [Concomitant]
     Active Substance: AVANAFIL
     Dosage: 25 MG
     Route: 065

REACTIONS (4)
  - Paraesthesia [Unknown]
  - Sexual dysfunction [Unknown]
  - Varicocele [Unknown]
  - Erectile dysfunction [Unknown]
